FAERS Safety Report 19282974 (Version 2)
Quarter: 2021Q4

REPORT INFORMATION
  Report Type: Spontaneous
  Country: FR (occurrence: FR)
  Receive Date: 20210521
  Receipt Date: 20211005
  Transmission Date: 20220304
  Serious: Yes (Hospitalization, Other)
  Sender: FDA-Public Use
  Company Number: None

PATIENT
  Age: 68 Year
  Sex: Female
  Weight: 83 kg

DRUGS (2)
  1. LEVOFLOXACIN [Suspect]
     Active Substance: LEVOFLOXACIN
     Indication: Infection
     Dosage: 500 MG, BID
     Route: 048
     Dates: start: 20210305
  2. RIFAMPIN [Suspect]
     Active Substance: RIFAMPIN
     Dosage: 300 MG, QID(300 MG 2 MORNING AND 2 EVENING)
     Route: 048
     Dates: start: 20210305

REACTIONS (3)
  - Encephalopathy [Not Recovered/Not Resolved]
  - Delirium [Not Recovered/Not Resolved]
  - Hallucination [Not Recovered/Not Resolved]

NARRATIVE: CASE EVENT DATE: 20210323
